FAERS Safety Report 18511473 (Version 1)
Quarter: 2020Q4

REPORT INFORMATION
  Report Type: Spontaneous
  Country: DK (occurrence: DK)
  Receive Date: 20201117
  Receipt Date: 20201117
  Transmission Date: 20210114
  Serious: Yes (Hospitalization)
  Sender: FDA-Public Use
  Company Number: DK-TEVA-2020-DK-1848244

PATIENT
  Age: 72 Year
  Sex: Male

DRUGS (7)
  1. PANTOPRAZOLE ^TEVA^ [Concomitant]
     Active Substance: PANTOPRAZOLE SODIUM
     Indication: GASTROOESOPHAGEAL REFLUX DISEASE
     Dosage: UNIT DOSE: 80MG:STARTDATE UNKNOWN, BUT AT LEAST SINCE DEC2018
     Route: 048
  2. ATORVASTATIN ^TEVA^ [Suspect]
     Active Substance: ATORVASTATIN
     Indication: HYPERCHOLESTEROLAEMIA
     Dosage: 80 MG
     Route: 048
     Dates: start: 20121212, end: 20201021
  3. MECASTRIN [Concomitant]
     Indication: INSOMNIA
     Dosage: 2MG
     Route: 048
     Dates: start: 20171219
  4. KININ ^COPYPHARM^ [Concomitant]
     Indication: MUSCLE SPASMS
     Dosage: 100MG
     Route: 048
     Dates: start: 20170328
  5. VAXIGRIPTETRA [Suspect]
     Active Substance: INFLUENZA VIRUS VACCINE QUADRIVALENT TYPE A+B
     Indication: INFLUENZA IMMUNISATION
     Dosage: 1DOSAGEFORM
     Dates: start: 20201005
  6. BLOXAZOC [Concomitant]
     Active Substance: METOPROLOL SUCCINATE
     Indication: HYPERTENSION
     Dosage: 25MG
     Route: 048
     Dates: start: 20131205
  7. RAMIPRIL ^TEVA^ [Concomitant]
     Active Substance: RAMIPRIL
     Indication: HYPERTENSION
     Dosage: 2.5MILLIGRAM:STARTDATE UNKNOWN, BUT AT LEAST SINCE MAY2019
     Route: 048

REACTIONS (2)
  - Asthenia [Not Recovered/Not Resolved]
  - Rhabdomyolysis [Not Recovered/Not Resolved]

NARRATIVE: CASE EVENT DATE: 202010
